FAERS Safety Report 6349813-X (Version None)
Quarter: 2009Q3

REPORT INFORMATION
  Report Type: 
  Country: None (occurrence: None)
  Receive Date: 20090911
  Receipt Date: 20090903
  Transmission Date: 20100115
  Serious: Yes (Hospitalization, Disabling, Other)
  Sender: FDA-Public Use
  Company Number: US-MERCK-0711USA02148

PATIENT
  Age: 71 Year
  Sex: Female
  Weight: 57 kg

DRUGS (5)
  1. FOSAMAX [Suspect]
     Indication: OSTEOPOROSIS
     Route: 048
     Dates: start: 19980201, end: 20060501
  2. FOSAMAX [Suspect]
     Route: 048
  3. FOSAMAX [Suspect]
     Route: 048
  4. LIPITOR [Concomitant]
     Route: 065
  5. SPORANOX [Concomitant]
     Route: 065

REACTIONS (34)
  - ABDOMINAL PAIN [None]
  - ACTINIC KERATOSIS [None]
  - ADVERSE EVENT [None]
  - ANXIETY [None]
  - APPENDICITIS [None]
  - CARPAL TUNNEL SYNDROME [None]
  - DEAFNESS [None]
  - DERMATOPHYTOSIS [None]
  - DIARRHOEA [None]
  - DIVERTICULUM [None]
  - DRY MOUTH [None]
  - DYSPHONIA [None]
  - ECZEMA NUMMULAR [None]
  - EPISTAXIS [None]
  - GASTROOESOPHAGEAL REFLUX DISEASE [None]
  - HEADACHE [None]
  - HYPERKERATOSIS [None]
  - IMPLANT SITE INFECTION [None]
  - INCISIONAL HERNIA [None]
  - NASAL CONGESTION [None]
  - NASAL SEPTUM DEVIATION [None]
  - NASAL ULCER [None]
  - NASOPHARYNGITIS [None]
  - ODYNOPHAGIA [None]
  - OEDEMA PERIPHERAL [None]
  - OSTEONECROSIS [None]
  - OVARIAN CYST [None]
  - PERITONITIS [None]
  - POST PROCEDURAL INFECTION [None]
  - PULPITIS DENTAL [None]
  - RIB FRACTURE [None]
  - ROTATOR CUFF SYNDROME [None]
  - SNORING [None]
  - TONGUE DISORDER [None]
